FAERS Safety Report 5249664-3 (Version None)
Quarter: 2007Q1

REPORT INFORMATION
  Report Type: 
  Country: None (occurrence: None)
  Receive Date: 20070228
  Receipt Date: 20060627
  Transmission Date: 20070707
  Serious: No
  Sender: FDA-Public Use
  Company Number: US-GLAXOSMITHKLINE-A0610492A

PATIENT
  Age: 84 Year
  Sex: Female

DRUGS (4)
  1. IMITREX [Suspect]
     Indication: MIGRAINE
     Route: 065
  2. PLAVIX [Concomitant]
  3. VYTORIN [Concomitant]
  4. ASPIRIN [Concomitant]

REACTIONS (1)
  - HEADACHE [None]
